FAERS Safety Report 25245451 (Version 2)
Quarter: 2025Q2

REPORT INFORMATION
  Report Type: Spontaneous
  Country: US (occurrence: US)
  Receive Date: 20250428
  Receipt Date: 20250527
  Transmission Date: 20250716
  Serious: No
  Sender: EISAI
  Company Number: US-Eisai-EC-2025-187116

PATIENT
  Age: 64 Year
  Sex: Female

DRUGS (1)
  1. LEQEMBI [Suspect]
     Active Substance: LECANEMAB-IRMB
     Indication: Dementia Alzheimer^s type
     Dates: end: 2025

REACTIONS (2)
  - Pain [Unknown]
  - Headache [Unknown]

NARRATIVE: CASE EVENT DATE: 20250101
